FAERS Safety Report 9395047 (Version 5)
Quarter: 2015Q3

REPORT INFORMATION
  Report Type: Spontaneous
  Country: US (occurrence: US)
  Receive Date: 20130711
  Receipt Date: 20150814
  Transmission Date: 20151125
  Serious: Yes (Hospitalization, Other)
  Sender: FDA-Public Use
  Company Number: US-PFIZER INC-2013202840

PATIENT
  Age: 77 Year
  Sex: Female
  Weight: 71 kg

DRUGS (11)
  1. CADUET [Suspect]
     Active Substance: AMLODIPINE BESYLATE\ATORVASTATIN CALCIUM
     Indication: HYPERTENSION
     Dosage: 2.5/10 MG, 1X/DAY
     Route: 048
     Dates: start: 20120728
  2. CADUET [Suspect]
     Active Substance: AMLODIPINE BESYLATE\ATORVASTATIN CALCIUM
     Indication: BLOOD CHOLESTEROL INCREASED
  3. CADUET [Suspect]
     Active Substance: AMLODIPINE BESYLATE\ATORVASTATIN CALCIUM
     Indication: BLOOD CHOLESTEROL
  4. DICYCLOMINE [Concomitant]
     Active Substance: DICYCLOMINE HYDROCHLORIDE
     Indication: IRRITABLE BOWEL SYNDROME
     Dosage: UNK, AS NEEDED
  5. VITAMIN C [Concomitant]
     Active Substance: ASCORBIC ACID
     Dosage: UNK, 1X/DAY
  6. CALCIUM [Concomitant]
     Active Substance: CALCIUM
     Dosage: UNK
  7. CADUET [Suspect]
     Active Substance: AMLODIPINE BESYLATE\ATORVASTATIN CALCIUM
     Indication: HYPERTENSION
  8. FISH OIL [Concomitant]
     Active Substance: FISH OIL
     Dosage: UNK
  9. CADUET [Suspect]
     Active Substance: AMLODIPINE BESYLATE\ATORVASTATIN CALCIUM
     Indication: BLOOD CHOLESTEROL INCREASED
     Dosage: 5/10MG, 1X/DAY
     Route: 048
  10. CADUET [Suspect]
     Active Substance: AMLODIPINE BESYLATE\ATORVASTATIN CALCIUM
     Indication: BLOOD PRESSURE MEASUREMENT
  11. ALEVE [Concomitant]
     Active Substance: NAPROXEN SODIUM
     Indication: ARTHRALGIA
     Dosage: UNK

REACTIONS (4)
  - Sepsis [Recovered/Resolved]
  - Herpes zoster [Recovered/Resolved]
  - Blood pressure inadequately controlled [Unknown]
  - Malaise [Recovered/Resolved]

NARRATIVE: CASE EVENT DATE: 201307
